FAERS Safety Report 14066427 (Version 2)
Quarter: 2017Q4

REPORT INFORMATION
  Report Type: Report from Study
  Country: DE (occurrence: DE)
  Receive Date: 20171009
  Receipt Date: 20171103
  Transmission Date: 20180321
  Serious: Yes (Hospitalization, Other)
  Sender: FDA-Public Use
  Company Number: DE-GILEAD-2017-0297397

PATIENT
  Sex: Female
  Weight: 57.3 kg

DRUGS (21)
  1. SOFOSBUVIR W/VELPATASVIR [Suspect]
     Active Substance: SOFOSBUVIR\VELPATASVIR
     Dosage: 1 DF, QD
     Route: 048
     Dates: start: 20170502, end: 20170809
  2. RIBAVIRIN. [Suspect]
     Active Substance: RIBAVIRIN
     Indication: HEPATITIS C
     Dosage: 800 MG, QD
     Route: 048
     Dates: start: 20170218, end: 20170504
  3. SPIRONOLACTONE. [Concomitant]
     Active Substance: SPIRONOLACTONE
  4. BIFITERAL [Concomitant]
     Active Substance: LACTULOSE
  5. RIBAVIRIN. [Suspect]
     Active Substance: RIBAVIRIN
     Dosage: 600 MG, UNK
     Route: 048
     Dates: start: 20170629, end: 20170809
  6. ALLOPURINOL. [Concomitant]
     Active Substance: ALLOPURINOL
  7. CARVEDILOL. [Concomitant]
     Active Substance: CARVEDILOL
  8. UNIZINK [Concomitant]
     Active Substance: AVOBENZONE\HOMOSALATE\OCTISALATE
  9. GLIMEPIRIDE. [Concomitant]
     Active Substance: GLIMEPIRIDE
  10. KALINOR                            /00031402/ [Concomitant]
     Active Substance: POTASSIUM CITRATE
  11. RIBAVIRIN. [Suspect]
     Active Substance: RIBAVIRIN
     Dosage: 200 MG, UNK
     Route: 048
     Dates: start: 20170523, end: 20170601
  12. CALCIUM [Concomitant]
     Active Substance: CALCIUM
  13. DEKRISTOL [Concomitant]
     Active Substance: CHOLECALCIFEROL
  14. PANTOPRAZOL [Concomitant]
     Active Substance: PANTOPRAZOLE SODIUM
  15. NOVAMINSULFON [Concomitant]
     Active Substance: METAMIZOLE
  16. TOREM                              /01036501/ [Concomitant]
     Active Substance: TORSEMIDE
  17. PANTOZOL [Concomitant]
     Active Substance: PANTOPRAZOLE SODIUM
  18. VITAMIN K [Concomitant]
     Active Substance: PHYTONADIONE
  19. SOFOSBUVIR W/VELPATASVIR [Suspect]
     Active Substance: SOFOSBUVIR\VELPATASVIR
     Indication: HEPATITIS C
     Dosage: 1 DF, QD
     Route: 048
     Dates: start: 20170218, end: 20170426
  20. RIBAVIRIN. [Suspect]
     Active Substance: RIBAVIRIN
     Dosage: 400 MG, UNK
     Route: 048
     Dates: start: 20170602, end: 20170628
  21. L-THYROXIN [Concomitant]
     Active Substance: LEVOTHYROXINE SODIUM

REACTIONS (3)
  - Peritonitis bacterial [Recovered/Resolved]
  - Acute kidney injury [Recovered/Resolved]
  - Hepatic cirrhosis [Recovered/Resolved]
